FAERS Safety Report 7454873-9 (Version None)
Quarter: 2011Q2

REPORT INFORMATION
  Report Type: 
  Country: None (occurrence: None)
  Receive Date: 20110503
  Receipt Date: 20110426
  Transmission Date: 20111010
  Serious: No
  Sender: FDA-Public Use
  Company Number: DE-SANOFI-AVENTIS-2011SA008870

PATIENT
  Age: 31 Year
  Sex: Female
  Weight: 78 kg

DRUGS (7)
  1. RAMIPRIL [Concomitant]
     Indication: HYPERTENSION
     Route: 048
     Dates: start: 20080101
  2. LEVOTHYROXINE SODIUM [Concomitant]
     Indication: HYPOTHYROIDISM
     Route: 048
     Dates: start: 20090101
  3. BISOPROLOL FUMARATE [Concomitant]
     Indication: HYPERTENSION
     Route: 048
     Dates: start: 20090101
  4. ARAVA [Suspect]
     Indication: ARTHRITIS
     Route: 048
     Dates: start: 20100101, end: 20110101
  5. PREDNISOLONE [Concomitant]
     Indication: ARTHRITIS
     Route: 048
     Dates: start: 20110301
  6. ETANERCEPT [Concomitant]
     Indication: ARTHRITIS
     Route: 058
     Dates: start: 20100301, end: 20110201
  7. OMEPRAZOLE [Concomitant]
     Route: 048
     Dates: start: 20040101

REACTIONS (1)
  - DRUG EXPOSURE DURING PREGNANCY [None]
